FAERS Safety Report 9355627 (Version 1)
Quarter: 2013Q2

REPORT INFORMATION
  Report Type: Report from Study
  Country: KR (occurrence: KR)
  Receive Date: 20130619
  Receipt Date: 20130619
  Transmission Date: 20140414
  Serious: Yes (Hospitalization)
  Sender: FDA-Public Use
  Company Number: KR-SANOFI-AVENTIS-2013SA058912

PATIENT
  Age: 67 Year
  Sex: Male
  Weight: 55.1 kg

DRUGS (6)
  1. OXALIPLATIN [Suspect]
     Indication: COLON CANCER
     Route: 065
     Dates: start: 20130509
  2. OXALIPLATIN [Suspect]
     Indication: COLON CANCER
     Route: 065
     Dates: start: 20130607
  3. 5-FU [Suspect]
     Indication: COLON CANCER
     Route: 065
     Dates: start: 20130509
  4. 5-FU [Suspect]
     Indication: COLON CANCER
     Route: 065
     Dates: start: 20130607
  5. FOLINIC ACID [Suspect]
     Indication: COLON CANCER
     Route: 065
     Dates: start: 20130509
  6. FOLINIC ACID [Suspect]
     Indication: COLON CANCER
     Route: 065
     Dates: start: 20130607

REACTIONS (1)
  - Toxic encephalopathy [Recovered/Resolved]
